FAERS Safety Report 5397062-4 (Version None)
Quarter: 2007Q3

REPORT INFORMATION
  Report Type: 
  Country: None (occurrence: None)
  Receive Date: 20070723
  Receipt Date: 20070709
  Transmission Date: 20080115
  Serious: Yes (Hospitalization)
  Sender: FDA-Public Use
  Company Number: 235630K07USA

PATIENT
  Age: 59 Year
  Sex: Female

DRUGS (5)
  1. REBIF [Suspect]
     Indication: MULTIPLE SCLEROSIS
     Dosage: 44 MCG, 3 IN 1 WEEKS, SUBCUTANEOUS
     Route: 058
     Dates: start: 20040109
  2. B12 (CYANOCOBALAMIN-TANNIN COMPLEX) [Concomitant]
  3. ASPIRIN [Concomitant]
  4. TENORMIN [Concomitant]
  5. OMEPRAZOLE [Concomitant]

REACTIONS (3)
  - DIZZINESS [None]
  - HEADACHE [None]
  - SUPRAVENTRICULAR TACHYCARDIA [None]
